FAERS Safety Report 5650450-0 (Version None)
Quarter: 2008Q1

REPORT INFORMATION
  Report Type: 
  Country: None (occurrence: None)
  Receive Date: 20080303
  Receipt Date: 20080218
  Transmission Date: 20080703
  Serious: Yes (Life-Threatening, Other)
  Sender: FDA-Public Use
  Company Number: 2008BI003006

PATIENT
  Age: 31 Year
  Sex: Female
  Weight: 72 kg

DRUGS (1)
  1. TYSABRI [Suspect]
     Indication: RELAPSING-REMITTING MULTIPLE SCLEROSIS
     Dosage: 300 MG; QW; IV
     Route: 042
     Dates: start: 20070601, end: 20080208

REACTIONS (3)
  - CARDIAC FAILURE [None]
  - DENTAL OPERATION [None]
  - PULMONARY EMBOLISM [None]
